FAERS Safety Report 5106834-2 (Version None)
Quarter: 2006Q3

REPORT INFORMATION
  Report Type: 
  Country: None (occurrence: None)
  Receive Date: 20060912
  Receipt Date: 20060906
  Transmission Date: 20061208
  Serious: Yes (Hospitalization, Disabling, Other)
  Sender: FDA-Public Use
  Company Number: TCI2005A04374

PATIENT
  Age: 77 Year
  Sex: Male

DRUGS (4)
  1. LEUPROLIDE ACETATE [Suspect]
     Indication: PROSTATE CANCER STAGE I
     Dosage: 3.75 MG (3.75 MG, 1 IN 28 D)
     Route: 058
     Dates: start: 20050922, end: 20050922
  2. CASODEX [Suspect]
     Indication: PROSTATE CANCER STAGE I
     Dosage: 80 MG (80 MG,1 IN 1 D)
     Route: 048
     Dates: start: 20050908
  3. CORTRIL [Concomitant]
  4. LEVOTHYROXINE SODIUM [Concomitant]

REACTIONS (6)
  - BRAIN COMPRESSION [None]
  - HEMIANOPIA HETERONYMOUS [None]
  - NEOPLASM PROGRESSION [None]
  - PITUITARY HAEMORRHAGE [None]
  - PITUITARY TUMOUR BENIGN [None]
  - VISUAL PATHWAY DISORDER [None]
